FAERS Safety Report 24592812 (Version 2)
Quarter: 2024Q4

REPORT INFORMATION
  Report Type: Spontaneous
  Country: US (occurrence: US)
  Receive Date: 20241108
  Receipt Date: 20241108
  Transmission Date: 20250115
  Serious: Yes (Hospitalization)
  Sender: AMGEN
  Company Number: US-AMGEN-USASP2024219422

PATIENT
  Age: 37 Year
  Sex: Female

DRUGS (2)
  1. PREDNISONE [Suspect]
     Active Substance: PREDNISONE
     Indication: Encapsulating peritoneal sclerosis
     Dosage: 40 MILLIGRAM, QD
     Route: 065
  2. TAMOXIFEN [Concomitant]
     Active Substance: TAMOXIFEN
     Indication: Encapsulating peritoneal sclerosis
     Dosage: 10 MILLIGRAM, TID

REACTIONS (3)
  - Small intestinal obstruction [Unknown]
  - Drug ineffective for unapproved indication [Unknown]
  - Off label use [Unknown]
